FAERS Safety Report 14014837 (Version 13)
Quarter: 2020Q2

REPORT INFORMATION
  Report Type: Spontaneous
  Country: US (occurrence: US)
  Receive Date: 20170927
  Receipt Date: 20200525
  Transmission Date: 20200713
  Serious: Yes (Hospitalization, Other)
  Sender: FDA-Public Use
  Company Number: US-PFIZER INC-2017416172

PATIENT
  Age: 65 Year
  Sex: Male

DRUGS (2)
  1. INLYTA [Suspect]
     Active Substance: AXITINIB
     Indication: NEOPLASM MALIGNANT
     Dosage: 2 MG, 2X/DAY(2 MG IN THE MORNING AND 2 MG IN THE NIGHT/ 4 MG DAILY)
  2. INLYTA [Suspect]
     Active Substance: AXITINIB
     Indication: LYMPHADENOPATHY
     Dosage: 3 MG, 2X/DAY
     Dates: start: 2016

REACTIONS (11)
  - Peripheral swelling [Unknown]
  - Hernia [Recovered/Resolved]
  - Impaired healing [Not Recovered/Not Resolved]
  - Dysphonia [Not Recovered/Not Resolved]
  - Lymph nodes scan abnormal [Not Recovered/Not Resolved]
  - Neoplasm progression [Not Recovered/Not Resolved]
  - Dyspepsia [Not Recovered/Not Resolved]
  - Weight decreased [Not Recovered/Not Resolved]
  - Slow response to stimuli [Recovered/Resolved]
  - Asthenia [Not Recovered/Not Resolved]
  - Fatigue [Not Recovered/Not Resolved]

NARRATIVE: CASE EVENT DATE: 2016
